FAERS Safety Report 15264214 (Version 1)
Quarter: 2018Q3

REPORT INFORMATION
  Report Type: Spontaneous
  Country: US (occurrence: US)
  Receive Date: 20180721
  Receipt Date: 20180721
  Transmission Date: 20181010
  Serious: Yes (Hospitalization)
  Sender: FDA-Public Use
  Company Number: None

PATIENT
  Age: 68 Year
  Sex: Male
  Weight: 140.8 kg

DRUGS (3)
  1. LENALIDOMIDE (CC?5013) [Suspect]
     Active Substance: LENALIDOMIDE
     Dates: end: 20180705
  2. VELCADE [Suspect]
     Active Substance: BORTEZOMIB
     Dates: end: 20180320
  3. DEXAMETHASONE. [Suspect]
     Active Substance: DEXAMETHASONE
     Dates: end: 20180705

REACTIONS (8)
  - Exercise tolerance decreased [None]
  - Fatigue [None]
  - Gait disturbance [None]
  - Chest discomfort [None]
  - Dyspnoea [None]
  - Peripheral swelling [None]
  - Pain in extremity [None]
  - Peripheral artery occlusion [None]

NARRATIVE: CASE EVENT DATE: 20180709
